FAERS Safety Report 8165593-X (Version None)
Quarter: 2012Q1

REPORT INFORMATION
  Report Type: 
  Country: None (occurrence: None)
  Receive Date: 20120223
  Receipt Date: 20120223
  Transmission Date: 20120608
  Serious: Yes (Life-Threatening, Disabling)
  Sender: FDA-Public Use
  Company Number: None

PATIENT
  Age: 74 Year
  Sex: Female
  Weight: 63.5036 kg

DRUGS (2)
  1. BONIVA [Suspect]
  2. BONIVA [Suspect]
     Indication: OSTEOARTHRITIS
     Dosage: 1 PILL 1 MONTHLY
     Dates: start: 20110101, end: 20110901

REACTIONS (10)
  - MUSCLE SPASMS [None]
  - JOINT INJURY [None]
  - LIMB INJURY [None]
  - DIZZINESS [None]
  - PARAESTHESIA [None]
  - HEADACHE [None]
  - PAIN IN EXTREMITY [None]
  - FALL [None]
  - ARTHRALGIA [None]
  - LOSS OF CONSCIOUSNESS [None]
